FAERS Safety Report 7239388-5 (Version None)
Quarter: 2011Q1

REPORT INFORMATION
  Report Type: 
  Country: None (occurrence: None)
  Receive Date: 20110121
  Receipt Date: 20110114
  Transmission Date: 20110831
  Serious: Yes (Hospitalization)
  Sender: FDA-Public Use
  Company Number: SK-ABBOTT-10P-260-0645622-00

PATIENT
  Sex: Female
  Weight: 50 kg

DRUGS (6)
  1. OMEPRAZOLE [Concomitant]
     Indication: PROPHYLAXIS AGAINST GASTROINTESTINAL ULCER
     Dates: start: 20100111, end: 20100225
  2. HUMIRA [Suspect]
     Route: 058
     Dates: start: 20100409
  3. MESALASINE [Concomitant]
     Indication: CROHN'S DISEASE
  4. FERRUM FOL [Concomitant]
     Indication: MINERAL SUPPLEMENTATION
     Route: 048
     Dates: start: 20100128, end: 20100330
  5. HUMIRA [Suspect]
     Indication: CROHN'S DISEASE
     Route: 058
     Dates: start: 20081201, end: 20100326
  6. PREDNISONE [Concomitant]
     Indication: CROHN'S DISEASE
     Dates: start: 20100111

REACTIONS (1)
  - PULMONARY EMBOLISM [None]
